FAERS Safety Report 5270081-4 (Version None)
Quarter: 2007Q1

REPORT INFORMATION
  Report Type: 
  Country: None (occurrence: None)
  Receive Date: 20070314
  Receipt Date: 20070228
  Transmission Date: 20070707
  Serious: Yes (Other)
  Sender: FDA-Public Use
  Company Number: 200611IM000645

PATIENT
  Age: 71 Year
  Sex: Female
  Weight: 58.9676 kg

DRUGS (6)
  1. INTERFERON GAMMA-1B [Suspect]
     Indication: IDIOPATHIC PULMONARY FIBROSIS
     Dosage: 200 UG, TIW, SUBCUTANEOUS
     Route: 058
     Dates: start: 20050221
  2. HYCODAN [Concomitant]
  3. TYLENOL [Concomitant]
  4. ACTOS [Concomitant]
  5. ACIPHEX [Concomitant]
  6. VORICONAZOLE [Concomitant]

REACTIONS (2)
  - LIP AND/OR ORAL CAVITY CANCER [None]
  - PNEUMOTHORAX [None]
